FAERS Safety Report 8005674-4 (Version None)
Quarter: 2011Q4

REPORT INFORMATION
  Report Type: 
  Country: None (occurrence: None)
  Receive Date: 20111223
  Receipt Date: 20111220
  Transmission Date: 20120403
  Serious: Yes (Hospitalization)
  Sender: FDA-Public Use
  Company Number: GB-AMGEN-GBRCT2011068017

PATIENT
  Age: 49 Year
  Sex: Female

DRUGS (2)
  1. HERCEPTIN [Concomitant]
     Dosage: 525 MG, UNK
     Route: 042
     Dates: start: 20110531
  2. DENOSUMAB [Suspect]
     Indication: BREAST CANCER
     Route: 058
     Dates: start: 20110621

REACTIONS (2)
  - HAEMATOMA [None]
  - PULMONARY EMBOLISM [None]
